FAERS Safety Report 17390693 (Version 2)
Quarter: 2020Q1

REPORT INFORMATION
  Report Type: Spontaneous
  Country: NL (occurrence: FR)
  Receive Date: 20200207
  Receipt Date: 20200220
  Transmission Date: 20200409
  Serious: Yes (Hospitalization)
  Sender: FDA-Public Use
  Company Number: FR-FRESENIUS KABI-FK202001075

PATIENT
  Age: 69 Year
  Sex: Male
  Weight: 70 kg

DRUGS (10)
  1. FLUOROURACIL. [Suspect]
     Active Substance: FLUOROURACIL
     Indication: ADENOCARCINOMA GASTRIC
     Route: 042
     Dates: start: 20191218
  2. ASCORBIC ACID/PYRIDOXINE HYDROCHLORIDE/BIOTIN/TOCOPHERYL ACETATE/FOLIC ACID/THIAMINE HYDROCHLORIDE/C [Concomitant]
     Indication: PRODUCT USED FOR UNKNOWN INDICATION
  3. PANTOPRAZOLE [Concomitant]
     Active Substance: PANTOPRAZOLE
     Indication: PRODUCT USED FOR UNKNOWN INDICATION
  4. METFORMIN EMBONATE [Concomitant]
     Indication: PRODUCT USED FOR UNKNOWN INDICATION
  5. NO DRUG NAME [Concomitant]
     Active Substance: UNSPECIFIED INGREDIENT
     Indication: PRODUCT USED FOR UNKNOWN INDICATION
  6. TRAVOPROST. [Concomitant]
     Active Substance: TRAVOPROST
     Indication: PRODUCT USED FOR UNKNOWN INDICATION
     Route: 047
  7. OXALIPLATIN (MANUFACTURER UNKNOWN) [Suspect]
     Active Substance: OXALIPLATIN
     Indication: ADENOCARCINOMA GASTRIC
     Route: 042
     Dates: start: 20191218
  8. INSULIN PORCINE PROTAMINE ZINC [Concomitant]
     Indication: PRODUCT USED FOR UNKNOWN INDICATION
  9. INDAPAMIDE/PERINDOPRIL ARGININE [Concomitant]
     Active Substance: INDAPAMIDE\PERINDOPRIL ARGININE
     Indication: PRODUCT USED FOR UNKNOWN INDICATION
     Route: 048
  10. DOCETAXEL (MANUFACTURER UNKNOWN) [Suspect]
     Active Substance: DOCETAXEL
     Indication: ADENOCARCINOMA GASTRIC
     Route: 042
     Dates: start: 20191218

REACTIONS (4)
  - Hypovolaemic shock [Recovered/Resolved]
  - Neutropenia [Recovered/Resolved]
  - Gastrointestinal necrosis [Recovered/Resolved]
  - Diarrhoea [Recovered/Resolved]

NARRATIVE: CASE EVENT DATE: 201912
